FAERS Safety Report 24251788 (Version 1)
Quarter: 2024Q3

REPORT INFORMATION
  Report Type: Spontaneous
  Country: CN (occurrence: CN)
  Receive Date: 20240827
  Receipt Date: 20240827
  Transmission Date: 20241016
  Serious: Yes (Other)
  Sender: SANOFI AVENTIS
  Company Number: CN-SA-SAC20240821000026

PATIENT
  Age: 14 Year
  Sex: Male
  Weight: 52 kg

DRUGS (1)
  1. THYMOGLOBULIN [Suspect]
     Active Substance: LAPINE T-LYMPHOCYTE IMMUNE GLOBULIN
     Indication: Transplant rejection
     Dosage: 150 MG, QD
     Route: 041
     Dates: start: 20240814, end: 20240814

REACTIONS (7)
  - Capillary leak syndrome [Recovering/Resolving]
  - Hepatic function abnormal [Recovering/Resolving]
  - Urine output decreased [Recovering/Resolving]
  - Pyrexia [Recovering/Resolving]
  - Hypotension [Recovered/Resolved]
  - Blood albumin decreased [Recovering/Resolving]
  - Face oedema [Recovering/Resolving]

NARRATIVE: CASE EVENT DATE: 20240814
